FAERS Safety Report 12692509 (Version 1)
Quarter: 2016Q3

REPORT INFORMATION
  Report Type: Spontaneous
  Country: US (occurrence: US)
  Receive Date: 20160829
  Receipt Date: 20160829
  Transmission Date: 20161109
  Serious: Yes (Hospitalization)
  Sender: FDA-Public Use
  Company Number: US-ROCHE-1820148

PATIENT
  Sex: Female

DRUGS (8)
  1. AVASTIN [Suspect]
     Active Substance: BEVACIZUMAB
     Indication: LUNG NEOPLASM MALIGNANT
     Route: 065
  2. ELIQUIS [Concomitant]
     Active Substance: APIXABAN
  3. FLECAINIDE [Concomitant]
     Active Substance: FLECAINIDE
  4. TEMODAR [Suspect]
     Active Substance: TEMOZOLOMIDE
     Route: 065
  5. TEMODAR [Suspect]
     Active Substance: TEMOZOLOMIDE
     Indication: LUNG NEOPLASM MALIGNANT
     Route: 065
  6. LISINOPRIL HCTZ [Concomitant]
     Active Substance: HYDROCHLOROTHIAZIDE\LISINOPRIL
  7. METOPROLOL TARTRATE. [Concomitant]
     Active Substance: METOPROLOL TARTRATE
  8. TRAZODONE [Concomitant]
     Active Substance: TRAZODONE HYDROCHLORIDE

REACTIONS (5)
  - Neutropenia [Recovering/Resolving]
  - Thrombocytopenia [Unknown]
  - Candida infection [Recovering/Resolving]
  - Decreased appetite [Unknown]
  - Renal failure [Recovering/Resolving]
